FAERS Safety Report 14330332 (Version 3)
Quarter: 2018Q1

REPORT INFORMATION
  Report Type: Spontaneous
  Country: JP (occurrence: JP)
  Receive Date: 20171227
  Receipt Date: 20180216
  Transmission Date: 20180509
  Serious: Yes (Hospitalization, Other)
  Sender: FDA-Public Use
  Company Number: PHJP2017JP037141

PATIENT

DRUGS (5)
  1. DANTROLENE. [Concomitant]
     Active Substance: DANTROLENE SODIUM
     Indication: CEREBRAL PALSY
     Dosage: UNK
     Route: 065
  2. LANSOPRAZOLE. [Suspect]
     Active Substance: LANSOPRAZOLE
     Indication: CEREBRAL PALSY
     Dosage: UNK
     Route: 048
  3. ETHYL LOFLAZEPATE [Concomitant]
     Active Substance: ETHYL LOFLAZEPATE
     Indication: CEREBRAL PALSY
     Dosage: UNK
     Route: 065
  4. AMANTADINE. [Suspect]
     Active Substance: AMANTADINE HYDROCHLORIDE
     Indication: CEREBRAL PALSY
     Dosage: UNK
     Route: 048
  5. FAMOTIDINE. [Concomitant]
     Active Substance: FAMOTIDINE
     Indication: CEREBRAL PALSY
     Dosage: UNK
     Route: 065

REACTIONS (5)
  - Rhabdomyolysis [Recovered/Resolved]
  - Tubulointerstitial nephritis [Recovered/Resolved]
  - Blood creatine phosphokinase increased [Unknown]
  - Pyrexia [Unknown]
  - Withdrawal syndrome [Recovered/Resolved]
